FAERS Safety Report 6671660-X (Version None)
Quarter: 2010Q2

REPORT INFORMATION
  Report Type: 
  Country: None (occurrence: None)
  Receive Date: 20100406
  Receipt Date: 20100406
  Transmission Date: 20101027
  Serious: No
  Sender: FDA-Public Use
  Company Number: None

PATIENT
  Sex: Male

DRUGS (3)
  1. ALPRAZOLAM [Suspect]
     Indication: ANXIETY
     Dosage: 0.5 MG Q6H PO
     Route: 048
     Dates: start: 20080101, end: 20090101
  2. ALPRAZOLAM [Suspect]
     Indication: IRRITABLE BOWEL SYNDROME
     Dosage: 0.5 MG Q6H PO
     Route: 048
     Dates: start: 20080101, end: 20090101
  3. ALPRAZOLAM [Suspect]
     Indication: PANIC DISORDER
     Dosage: 0.5 MG Q6H PO
     Route: 048
     Dates: start: 20080101, end: 20090101

REACTIONS (2)
  - DRUG INEFFECTIVE [None]
  - PRODUCT SUBSTITUTION ISSUE [None]
